FAERS Safety Report 5165482-9 (Version None)
Quarter: 2006Q4

REPORT INFORMATION
  Report Type: 
  Country: None (occurrence: None)
  Receive Date: 20061206
  Receipt Date: 20061110
  Transmission Date: 20070319
  Serious: Yes (Other)
  Sender: FDA-Public Use
  Company Number: PHBS2006NL17522

PATIENT
  Age: 31 Year
  Sex: Male
  Weight: 70 kg

DRUGS (5)
  1. LAMISIL [Suspect]
     Indication: NAIL TINEA
     Dosage: 250 MG, QD
     Route: 048
     Dates: start: 20061011, end: 20061104
  2. SALBUTAMOL [Concomitant]
     Dosage: 100 UG, BID
     Dates: start: 20000808
  3. CELLCEPT [Concomitant]
     Indication: MYASTHENIA GRAVIS
     Dosage: 500 MEQ/KG, BID
     Route: 048
     Dates: start: 20040216
  4. MESTINON [Concomitant]
     Indication: MYASTHENIA GRAVIS
     Dosage: 180 MG, 7QD
     Route: 048
     Dates: start: 20011105
  5. MESTINON [Concomitant]
     Dosage: 180 MG, QD
     Route: 048
     Dates: start: 20011105

REACTIONS (4)
  - DIPLOPIA [None]
  - EYELID PTOSIS [None]
  - MUSCULAR WEAKNESS [None]
  - MYASTHENIA GRAVIS [None]
